FAERS Safety Report 8401154-2 (Version None)
Quarter: 2012Q2

REPORT INFORMATION
  Report Type: 
  Country: None (occurrence: None)
  Receive Date: 20120529
  Receipt Date: 20120529
  Transmission Date: 20120825
  Serious: Yes (Other)
  Sender: FDA-Public Use
  Company Number: None

PATIENT
  Age: 42 Year
  Sex: Female
  Weight: 58.9676 kg

DRUGS (2)
  1. OPANA ER [Suspect]
     Indication: NERVE COMPRESSION
     Dosage: 10 MG 2X PER DAY PO
     Route: 048
     Dates: start: 20120510, end: 20120516
  2. OPANA ER [Suspect]
     Indication: COMPLEX REGIONAL PAIN SYNDROME
     Dosage: 10 MG 2X PER DAY PO
     Route: 048
     Dates: start: 20120510, end: 20120516

REACTIONS (5)
  - PRODUCT FORMULATION ISSUE [None]
  - QUALITY OF LIFE DECREASED [None]
  - ACTIVITIES OF DAILY LIVING IMPAIRED [None]
  - INADEQUATE ANALGESIA [None]
  - IMPAIRED WORK ABILITY [None]
